FAERS Safety Report 17849733 (Version 5)
Quarter: 2021Q2

REPORT INFORMATION
  Report Type: Spontaneous
  Country: US (occurrence: US)
  Receive Date: 20200602
  Receipt Date: 20210614
  Transmission Date: 20210717
  Serious: No
  Sender: FDA-Public Use
  Company Number: US-PFIZER INC-2020214637

PATIENT
  Age: 65 Year

DRUGS (2)
  1. HYDROCORTISONE. [Suspect]
     Active Substance: HYDROCORTISONE
     Indication: HYPOPITUITARISM
     Dosage: 10 MG
  2. HYDROCORTISONE. [Suspect]
     Active Substance: HYDROCORTISONE
     Indication: HORMONE REPLACEMENT THERAPY

REACTIONS (5)
  - Drug ineffective [Unknown]
  - Swelling face [Unknown]
  - Off label use [Unknown]
  - Cushingoid [Unknown]
  - Fatigue [Unknown]
